FAERS Safety Report 6834899-6 (Version None)
Quarter: 2010Q3

REPORT INFORMATION
  Report Type: 
  Country: None (occurrence: None)
  Receive Date: 20100712
  Receipt Date: 20070418
  Transmission Date: 20110219
  Serious: No
  Sender: FDA-Public Use
  Company Number: US-PFIZER INC-2007031820

PATIENT
  Sex: Male

DRUGS (2)
  1. CHANTIX [Suspect]
     Dates: start: 20070301
  2. DRUG, UNSPECIFIED [Concomitant]

REACTIONS (3)
  - DEVICE DISLOCATION [None]
  - DYSGEUSIA [None]
  - MALAISE [None]
